FAERS Safety Report 6918858-0 (Version None)
Quarter: 2010Q3

REPORT INFORMATION
  Report Type: 
  Country: None (occurrence: None)
  Receive Date: 20100811
  Receipt Date: 20100430
  Transmission Date: 20110219
  Serious: No
  Sender: FDA-Public Use
  Company Number: US-TYCO HEALTHCARE/MALLINCKRODT-T201001147

PATIENT

DRUGS (2)
  1. ACETAMINOPHEN AND HYDROCODONE BITARTRATE [Suspect]
     Indication: NECK PAIN
     Dosage: 1 TABLET, TID, PRN
     Dates: start: 20100421, end: 20100428
  2. ACETAMINOPHEN AND HYDROCODONE BITARTRATE [Suspect]
     Indication: BACK PAIN

REACTIONS (2)
  - HYPERHIDROSIS [None]
  - THERAPEUTIC RESPONSE UNEXPECTED [None]
